FAERS Safety Report 7621527-5 (Version None)
Quarter: 2011Q3

REPORT INFORMATION
  Report Type: 
  Country: None (occurrence: None)
  Receive Date: 20110719
  Receipt Date: 20110714
  Transmission Date: 20111222
  Serious: Yes (Hospitalization, Other)
  Sender: FDA-Public Use
  Company Number: JP-PFIZER INC-2011147082

PATIENT
  Age: 92 Year
  Sex: Female
  Weight: 45 kg

DRUGS (12)
  1. EVISTA [Concomitant]
     Dosage: UNK
     Dates: start: 20110421
  2. ADALAT [Concomitant]
     Dosage: UNK
     Dates: start: 20110421
  3. JUVELA NICOTINATE [Concomitant]
     Dosage: UNK
     Dates: start: 20110421
  4. PLETAL [Concomitant]
     Dosage: UNK
     Dates: start: 20110421
  5. LYRICA [Suspect]
     Dosage: 75 MG, 2X/DAY
     Route: 048
     Dates: start: 20110421, end: 20110618
  6. ASPIRIN [Concomitant]
     Dosage: UNK
     Dates: start: 20110421
  7. OLMESARTAN MEDOXOMIL [Concomitant]
     Dosage: UNK
     Dates: start: 20110421
  8. MONTELUKAST SODIUM [Concomitant]
     Dosage: UNK
     Dates: start: 20110421
  9. ROCALTROL [Concomitant]
     Dosage: UNK
     Dates: start: 20110421
  10. LYRICA [Suspect]
     Indication: POST HERPETIC NEURALGIA
     Dosage: 75 MG, 1X/DAY
     Route: 048
     Dates: start: 20110414, end: 20110420
  11. TULOBUTEROL [Concomitant]
     Dosage: UNK
     Route: 061
     Dates: start: 20110421
  12. BUFFERIN [Concomitant]
     Dosage: UNK

REACTIONS (4)
  - RHABDOMYOLYSIS [None]
  - RENAL IMPAIRMENT [None]
  - DEHYDRATION [None]
  - HYPONATRAEMIA [None]
